FAERS Safety Report 6618203-4 (Version None)
Quarter: 2010Q1

REPORT INFORMATION
  Report Type: 
  Country: None (occurrence: None)
  Receive Date: 20100308
  Receipt Date: 20100302
  Transmission Date: 20100710
  Serious: Yes (Death, Hospitalization)
  Sender: FDA-Public Use
  Company Number: FR-PFIZER INC-2010020235

PATIENT
  Age: 78 Year
  Sex: Female

DRUGS (11)
  1. CEFPODOXIME PROXETIL [Suspect]
     Indication: PYELONEPHRITIS
     Dosage: 100 MG, UNK
     Route: 048
     Dates: start: 20091227, end: 20091228
  2. ROCEPHIN [Suspect]
     Indication: PYELONEPHRITIS
     Dosage: UNK
     Route: 042
     Dates: start: 20091218, end: 20091226
  3. ROCEPHIN [Suspect]
     Dosage: UNK
     Dates: start: 20091228, end: 20091230
  4. PARACETAMOL [Concomitant]
     Dosage: UNK
     Dates: end: 20100104
  5. ZOLPIDEM [Concomitant]
     Dosage: UNK
     Dates: end: 20100104
  6. POTASSIUM [Concomitant]
     Dosage: UNK
     Dates: end: 20100104
  7. LEVODOPA [Concomitant]
     Dosage: UNK
     Dates: end: 20100104
  8. PANTOPRAZOLE [Concomitant]
     Dosage: UNK
     Dates: end: 20100104
  9. CLOPIDOGREL [Concomitant]
     Dosage: UNK
     Dates: end: 20100104
  10. FLUOXETINE [Concomitant]
     Dosage: UNK
     Dates: end: 20100104
  11. FORLAX [Concomitant]
     Dosage: UNK
     Dates: end: 20100104

REACTIONS (2)
  - ACUTE GENERALISED EXANTHEMATOUS PUSTULOSIS [None]
  - DEATH [None]
